FAERS Safety Report 21211493 (Version 2)
Quarter: 2022Q3

REPORT INFORMATION
  Report Type: Spontaneous
  Country: FR (occurrence: FR)
  Receive Date: 20220815
  Receipt Date: 20220912
  Transmission Date: 20221027
  Serious: Yes (Death, Other)
  Sender: FDA-Public Use
  Company Number: FR-INCYTE CORPORATION-2022IN007794

PATIENT

DRUGS (1)
  1. TAFASITAMAB [Suspect]
     Active Substance: TAFASITAMAB
     Indication: Diffuse large B-cell lymphoma
     Dosage: 960 UNK
     Route: 065
     Dates: start: 20211231, end: 20220705

REACTIONS (3)
  - Diffuse large B-cell lymphoma [Fatal]
  - Disease progression [Fatal]
  - Infection [Fatal]
